FAERS Safety Report 4307728-2 (Version None)
Quarter: 2004Q1

REPORT INFORMATION
  Report Type: 
  Country: None (occurrence: None)
  Receive Date: 20040227
  Receipt Date: 20040227
  Transmission Date: 20041129
  Serious: Yes (Other)
  Sender: FDA-Public Use
  Company Number: None

PATIENT
  Sex: Female
  Weight: 64.4108 kg

DRUGS (10)
  1. CEFEPIME  51479-0050-30 [Suspect]
     Indication: WOUND INFECTION
     Dosage: 1G Q 12 HOURS IV
     Route: 042
     Dates: start: 20040204, end: 20040223
  2. VANCOMYCIN [Suspect]
     Indication: WOUND INFECTION
     Dosage: 1 G Q 48 HOUR IV
     Route: 042
     Dates: start: 20031205
  3. RANITIDINE [Concomitant]
  4. HUMULIN INSULIN [Concomitant]
  5. REG INS [Concomitant]
  6. FESO4 [Concomitant]
  7. VIT C [Concomitant]
  8. VICODIN [Concomitant]
  9. XANAX [Concomitant]
  10. DILANTIN [Concomitant]

REACTIONS (2)
  - RASH ERYTHEMATOUS [None]
  - RASH PRURITIC [None]
